FAERS Safety Report 5289903-6 (Version None)
Quarter: 2007Q1

REPORT INFORMATION
  Report Type: 
  Country: None (occurrence: None)
  Receive Date: 20070116
  Receipt Date: 20060419
  Transmission Date: 20070707
  Serious: Yes (Other)
  Sender: FDA-Public Use
  Company Number: HQWYE088013AUG03

PATIENT
  Age: 70 Year
  Sex: Female
  Weight: 74.91 kg

DRUGS (9)
  1. PREMPRO [Suspect]
     Indication: HORMONE REPLACEMENT THERAPY
     Dosage: 0.625MG/2.5 MG ONCE DAILY, ORAL
     Route: 048
     Dates: start: 20010222, end: 20020701
  2. ROCEPHIN [Concomitant]
  3. ZOCOR [Concomitant]
  4. AVANDIA [Concomitant]
  5. GLUCOTROL XL [Concomitant]
  6. BENICAR [Concomitant]
  7. DITROPAN [Concomitant]
  8. COZAAR [Concomitant]
  9. MECLIZINE [Concomitant]

REACTIONS (1)
  - BREAST CANCER [None]
